FAERS Safety Report 11938726 (Version 2)
Quarter: 2016Q1

REPORT INFORMATION
  Report Type: Spontaneous
  Country: RS (occurrence: RS)
  Receive Date: 20160122
  Receipt Date: 20160201
  Transmission Date: 20160526
  Serious: Yes (Death, Hospitalization)
  Sender: FDA-Public Use
  Company Number: RS-UNICHEM LABORATORIES LIMITED-UCM201601-000007

PATIENT
  Age: 24 Year
  Sex: Female

DRUGS (3)
  1. GLICLAZIDE [Suspect]
     Active Substance: GLICLAZIDE
  2. AMLODIPINE [Suspect]
     Active Substance: AMLODIPINE BESYLATE
  3. METFORMIN [Suspect]
     Active Substance: METFORMIN HYDROCHLORIDE

REACTIONS (9)
  - Bundle branch block right [Unknown]
  - Atrioventricular block first degree [Unknown]
  - Poisoning deliberate [Fatal]
  - Intentional overdose [Fatal]
  - Hyperglycaemia [Unknown]
  - Cardiotoxicity [Unknown]
  - Metabolic acidosis [Unknown]
  - Cardiac arrest [Fatal]
  - Shock [Unknown]
